FAERS Safety Report 21295679 (Version 2)
Quarter: 2022Q4

REPORT INFORMATION
  Report Type: Spontaneous
  Country: JP (occurrence: JP)
  Receive Date: 20220906
  Receipt Date: 20221006
  Transmission Date: 20230113
  Serious: Yes (Death, Other)
  Sender: FDA-Public Use
  Company Number: JP-UNITED THERAPEUTICS-UNT-2022-011115

PATIENT
  Age: 5 Year
  Sex: Male

DRUGS (3)
  1. UNITUXIN [Suspect]
     Active Substance: DINUTUXIMAB
     Indication: Neuroblastoma
     Dosage: 17.5 MG/M2, CYCLICAL (CYCLE 1)
     Route: 041
     Dates: start: 20220510, end: 20220513
  2. UNITUXIN [Suspect]
     Active Substance: DINUTUXIMAB
     Dosage: 17.5 MG/M2, CYCLICAL (CYCLE 2)
     Route: 041
     Dates: start: 20220607, end: 20220610
  3. UNITUXIN [Suspect]
     Active Substance: DINUTUXIMAB
     Dosage: 17.5 MG/M2, CYCLICAL (CYCLE 4)
     Route: 041
     Dates: start: 20220802, end: 20220805

REACTIONS (6)
  - Neuroblastoma [Fatal]
  - Pyrexia [Unknown]
  - Abdominal pain [Recovering/Resolving]
  - Pyrexia [Unknown]
  - Abdominal pain [Unknown]
  - Therapeutic response decreased [Unknown]

NARRATIVE: CASE EVENT DATE: 20220101
